FAERS Safety Report 17345332 (Version 1)
Quarter: 2020Q1

REPORT INFORMATION
  Report Type: Spontaneous
  Country: US (occurrence: US)
  Receive Date: 20200129
  Receipt Date: 20200129
  Transmission Date: 20200409
  Serious: No
  Sender: FDA-Public Use
  Company Number: US-ALLERGAN-1947852US

PATIENT

DRUGS (1)
  1. BOTOX COSMETIC [Suspect]
     Active Substance: ONABOTULINUMTOXINA
     Indication: SKIN WRINKLING
     Dosage: 15 UNITS, SINGLE
     Dates: start: 20191112, end: 20191112

REACTIONS (9)
  - Panic attack [Unknown]
  - Dizziness [Unknown]
  - Hypoaesthesia [Unknown]
  - Tinnitus [Unknown]
  - Tremor [Unknown]
  - Muscle twitching [Unknown]
  - Muscular weakness [Unknown]
  - Insomnia [Unknown]
  - Decreased appetite [Unknown]

NARRATIVE: CASE EVENT DATE: 201911
